FAERS Safety Report 19239628 (Version 1)
Quarter: 2021Q2

REPORT INFORMATION
  Report Type: Spontaneous
  Country: CH (occurrence: CH)
  Receive Date: 20210511
  Receipt Date: 20210511
  Transmission Date: 20210717
  Serious: Yes (Death, Life-Threatening, Hospitalization)
  Sender: FDA-Public Use
  Company Number: CH-TEVA-2021-CH-1910021

PATIENT
  Age: 55 Year
  Sex: Female

DRUGS (7)
  1. NIMODIPINE. [Suspect]
     Active Substance: NIMODIPINE
     Indication: REVERSIBLE CEREBRAL VASOCONSTRICTION SYNDROME
     Dosage: 90 MILLIGRAM DAILY;
     Route: 048
  2. TUAMINOHEPTANE [Suspect]
     Active Substance: TUAMINOHEPTANE
     Indication: VASOCONSTRICTION
     Route: 045
  3. ARIPIPRAZOLE. [Suspect]
     Active Substance: ARIPIPRAZOLE
     Indication: BIPOLAR DISORDER
     Route: 065
  4. VENLAFAXINE [Suspect]
     Active Substance: VENLAFAXINE HYDROCHLORIDE
     Indication: BIPOLAR DISORDER
     Route: 065
  5. BUPRENORPHINE. [Concomitant]
     Active Substance: BUPRENORPHINE
     Indication: BIPOLAR DISORDER
     Route: 065
  6. NOREPINEPHRINE. [Suspect]
     Active Substance: NOREPINEPHRINE
     Indication: MEAN ARTERIAL PRESSURE DECREASED
     Route: 065
  7. NIMODIPINE. [Suspect]
     Active Substance: NIMODIPINE
     Dosage: 360 MILLIGRAM DAILY; DOSE INCREASED TO 60MG EVERY 4 H
     Route: 048

REACTIONS (7)
  - Brain herniation [Fatal]
  - Coma [Unknown]
  - Brain oedema [Unknown]
  - Reversible cerebral vasoconstriction syndrome [Fatal]
  - Cerebral ischaemia [Unknown]
  - Haemorrhagic stroke [Unknown]
  - Ischaemic stroke [Unknown]
